FAERS Safety Report 8623371-9 (Version None)
Quarter: 2012Q3

REPORT INFORMATION
  Report Type: 
  Country: None (occurrence: None)
  Receive Date: 20120827
  Receipt Date: 20120820
  Transmission Date: 20120928
  Serious: Yes (Life-Threatening, Hospitalization, Other)
  Sender: FDA-Public Use
  Company Number: CH-JNJFOC-20120810712

PATIENT
  Age: 4 Decade
  Sex: Male

DRUGS (1)
  1. REMICADE [Suspect]
     Indication: CROHN'S DISEASE
     Dosage: STOP DATE: JUN OR JUL-2012
     Route: 042
     Dates: start: 20090901, end: 20120101

REACTIONS (1)
  - THYMOMA MALIGNANT [None]
